FAERS Safety Report 22245082 (Version 2)
Quarter: 2023Q2

REPORT INFORMATION
  Report Type: Report from Study
  Country: MX (occurrence: MX)
  Receive Date: 20230424
  Receipt Date: 20230626
  Transmission Date: 20230722
  Serious: Yes (Other)
  Sender: FDA-Public Use
  Company Number: MX-002147023-NVSC2023MX091153

PATIENT
  Sex: Male
  Weight: 56 kg

DRUGS (5)
  1. ENTRESTO [Suspect]
     Active Substance: SACUBITRIL\VALSARTAN
     Indication: Cardiac failure
     Dosage: 1 DOSAGE FORM, BID (EVERY 12 HOURS)
     Route: 048
     Dates: start: 202302
  2. METOPROLOL [Suspect]
     Active Substance: METOPROLOL
     Indication: Product used for unknown indication
     Dosage: 0.25 DOSAGE FORM, QD (100MG, EVERY 24HOURS)
     Route: 065
  3. ATORVASTATIN [Suspect]
     Active Substance: ATORVASTATIN
     Indication: Product used for unknown indication
     Dosage: 1 DOSAGE FORM, QD (20MG, EVERY 24 HOURS)
     Route: 065
  4. OMEPRAZOLE [Concomitant]
     Active Substance: OMEPRAZOLE
     Indication: Product used for unknown indication
     Dosage: 1 DOSAGE FORM, QD (20 MG, 1 EVERY 24 HOURS)
     Route: 065
  5. SPIRONOLACTONE [Concomitant]
     Active Substance: SPIRONOLACTONE
     Indication: Product used for unknown indication
     Dosage: 25 MG, QD, (EVERY 24 HOURS)
     Route: 065

REACTIONS (11)
  - Syncope [Not Recovered/Not Resolved]
  - Dizziness [Not Recovered/Not Resolved]
  - Coagulopathy [Unknown]
  - Pigmentation disorder [Not Recovered/Not Resolved]
  - Fall [Unknown]
  - Hypertension [Unknown]
  - Limb discomfort [Unknown]
  - Weight increased [Unknown]
  - Anaemia [Not Recovered/Not Resolved]
  - Underdose [Unknown]
  - Wrong technique in product usage process [Unknown]
